FAERS Safety Report 9266002 (Version 3)
Quarter: 2013Q2

REPORT INFORMATION
  Report Type: Report from Study
  Country: US (occurrence: US)
  Receive Date: 20130501
  Receipt Date: 20130509
  Transmission Date: 20140414
  Serious: Yes (Death, Life-Threatening, Hospitalization)
  Sender: FDA-Public Use
  Company Number: US-009507513-1304USA017740

PATIENT
  Age: 63 Year
  Sex: Male
  Weight: 95.48 kg

DRUGS (5)
  1. VORINOSTAT [Suspect]
     Indication: GLIOBLASTOMA MULTIFORME
     Dosage: 300 MG, QD, DAYS 1-5, WEEKLY, CYCLE 1= 6 WEEKS
     Route: 048
     Dates: start: 20120820, end: 20120824
  2. VORINOSTAT [Suspect]
     Dosage: 400 MG, QD, 1-7 AND 15-21
     Route: 048
     Dates: start: 20130424, end: 20130425
  3. TEMOZOLOMIDE [Suspect]
     Indication: GLIOBLASTOMA MULTIFORME
     Dosage: 75 MG/M2, QD, FOLLOWED BY 4-6 WEEKS REST PERIOD
     Route: 048
     Dates: start: 20120820, end: 20121001
  4. TEMOZOLOMIDE [Suspect]
     Dosage: 200 MG/M2, ON DAYS 1-5
     Route: 048
     Dates: start: 20130424, end: 20130425
  5. LOVENOX [Suspect]

REACTIONS (4)
  - Embolism [Recovering/Resolving]
  - Haemorrhage intracranial [Fatal]
  - Hydrocephalus [Unknown]
  - Convulsion [Unknown]
